FAERS Safety Report 23820559 (Version 1)
Quarter: 2024Q2

REPORT INFORMATION
  Report Type: Spontaneous
  Country: US (occurrence: None)
  Receive Date: 20240503
  Receipt Date: 20240503
  Transmission Date: 20240715
  Serious: Yes (Other)
  Sender: FDA-Public Use
  Company Number: None

PATIENT
  Age: 71 Year
  Sex: Male

DRUGS (1)
  1. ELIQUIS [Suspect]
     Active Substance: APIXABAN
     Indication: Atrial fibrillation
     Dosage: FREQUENCY : TWICE A DAY;?
     Route: 048
     Dates: start: 20240403, end: 20240501

REACTIONS (6)
  - Peripheral swelling [None]
  - Pruritus [None]
  - Skin disorder [None]
  - Skin haemorrhage [None]
  - Contusion [None]
  - Therapy cessation [None]

NARRATIVE: CASE EVENT DATE: 20240501
